FAERS Safety Report 7651205-8 (Version None)
Quarter: 2011Q3

REPORT INFORMATION
  Report Type: 
  Country: None (occurrence: None)
  Receive Date: 20110802
  Receipt Date: 20110717
  Transmission Date: 20111222
  Serious: No
  Sender: FDA-Public Use
  Company Number: US-BAYER-2011-063483

PATIENT
  Sex: Female

DRUGS (2)
  1. ALEVE (CAPLET) [Suspect]
     Indication: DYSMENORRHOEA
     Dosage: DAILY DOSE 1100 MG
     Route: 048
     Dates: start: 20110716
  2. TYLENOL-500 [Concomitant]
     Indication: DYSMENORRHOEA
     Dosage: DAILY DOSE 4 DF
     Dates: start: 20110716

REACTIONS (1)
  - DYSMENORRHOEA [None]
